FAERS Safety Report 10071252 (Version 5)
Quarter: 2014Q2

REPORT INFORMATION
  Report Type: Spontaneous
  Country: US (occurrence: US)
  Receive Date: 20140410
  Receipt Date: 20140529
  Transmission Date: 20141212
  Serious: Yes (Other)
  Sender: FDA-Public Use
  Company Number: CHPA2014US005036

PATIENT
  Age: 51 Year
  Sex: Male

DRUGS (5)
  1. VOLTAREN GEL [Suspect]
     Indication: NECK PAIN
     Dosage: SMALL DAB ON THUMB, UNK
     Route: 061
     Dates: start: 2009, end: 2014
  2. VOLTAREN GEL [Suspect]
     Indication: ROTATOR CUFF SYNDROME
     Dosage: SMALL DAB ON THUMB, 2 TO 4 TIMES A DAY
     Route: 061
     Dates: start: 201403
  3. VOLTAREN GEL [Suspect]
     Indication: MENISCUS INJURY
  4. VOLTAREN GEL [Suspect]
     Indication: CARPAL TUNNEL SYNDROME
  5. VOLTAREN GEL [Suspect]
     Indication: OFF LABEL USE

REACTIONS (7)
  - Benign neoplasm [Not Recovered/Not Resolved]
  - Rotator cuff syndrome [Not Recovered/Not Resolved]
  - Meniscus injury [Not Recovered/Not Resolved]
  - Carpal tunnel syndrome [Not Recovered/Not Resolved]
  - Pain [Unknown]
  - Drug administered at inappropriate site [Unknown]
  - Wrong technique in drug usage process [Unknown]
